FAERS Safety Report 17390290 (Version 1)
Quarter: 2020Q1

REPORT INFORMATION
  Report Type: Report from Study
  Country: None (occurrence: JP)
  Receive Date: 20200207
  Receipt Date: 20200207
  Transmission Date: 20200409
  Serious: Yes (Hospitalization)
  Sender: FDA-Public Use
  Company Number: JP-ABBVIE-19P-087-2937877-00

PATIENT
  Age: 28 Year
  Sex: Male
  Weight: 48.2 kg

DRUGS (10)
  1. ONON [Concomitant]
     Active Substance: PRANLUKAST
     Indication: DERMATITIS ATOPIC
     Route: 048
     Dates: start: 20130116
  2. FLUOCINOLONE ACETONIDE. [Suspect]
     Active Substance: FLUOCINOLONE ACETONIDE
     Dosage: DOSE: 1 APPLICATION
     Route: 061
     Dates: start: 20191004
  3. OLOPATADINE. [Concomitant]
     Active Substance: OLOPATADINE
     Indication: DERMATITIS ATOPIC
     Route: 048
     Dates: start: 20151224
  4. WHITE PETROLATUM [Concomitant]
     Active Substance: PETROLATUM
     Indication: DRY SKIN PROPHYLAXIS
     Dosage: OPTIMUM DOSE
     Route: 061
     Dates: start: 20190123
  5. FLUOCINOLONE ACETONIDE. [Suspect]
     Active Substance: FLUOCINOLONE ACETONIDE
     Indication: DERMATITIS ATOPIC
     Dosage: DOSE: 1 APPLICATION
     Route: 061
     Dates: start: 20190130, end: 20190219
  6. UPADACITINIB [Suspect]
     Active Substance: UPADACITINIB
     Indication: DERMATITIS ATOPIC
     Route: 048
     Dates: start: 20190130, end: 20190924
  7. UPADACITINIB [Suspect]
     Active Substance: UPADACITINIB
     Route: 048
     Dates: start: 20191007
  8. PREDNISOLONE. [Suspect]
     Active Substance: PREDNISOLONE
     Indication: DERMATITIS ATOPIC
     Dosage: DOSE: 1 APPLICATION
     Route: 061
     Dates: start: 20190220, end: 20190226
  9. MIYA-BM [Concomitant]
     Active Substance: CLOSTRIDIUM BUTYRICUM SPORES STRAIN M-55
     Indication: PROPHYLAXIS AGAINST DIARRHOEA
     Route: 048
     Dates: start: 20120801
  10. BIOTIN [Concomitant]
     Active Substance: BIOTIN
     Indication: DERMATITIS ATOPIC
     Route: 048
     Dates: start: 20120801

REACTIONS (1)
  - Herpes zoster cutaneous disseminated [Recovered/Resolved]

NARRATIVE: CASE EVENT DATE: 20190920
